FAERS Safety Report 8882492 (Version 2)
Quarter: 2013Q1

REPORT INFORMATION
  Report Type: Report from Study
  Country: US (occurrence: US)
  Receive Date: 20121103
  Receipt Date: 20130215
  Transmission Date: 20140127
  Serious: Yes (Hospitalization, Other)
  Sender: FDA-Public Use
  Company Number: US-US-EMD SERONO, INC.-7166188

PATIENT
  Age: 59 Year
  Sex: Female

DRUGS (1)
  1. REBIF [Suspect]
     Indication: PRODUCT USED FOR UNKNOWN INDICATION
     Route: 058
     Dates: start: 20120612

REACTIONS (14)
  - Glomerular filtration rate abnormal [Not Recovered/Not Resolved]
  - Meniere^s disease [Unknown]
  - Insomnia [Not Recovered/Not Resolved]
  - Blood potassium decreased [Unknown]
  - Migraine [Unknown]
  - Sinusitis [Unknown]
  - Bladder discomfort [Not Recovered/Not Resolved]
  - Nausea [Not Recovered/Not Resolved]
  - Gait disturbance [Not Recovered/Not Resolved]
  - Asthenia [Not Recovered/Not Resolved]
  - Back pain [Not Recovered/Not Resolved]
  - Thyroid function test abnormal [Unknown]
  - Injection site erythema [Not Recovered/Not Resolved]
  - Influenza like illness [Not Recovered/Not Resolved]
